FAERS Safety Report 12337291 (Version 2)
Quarter: 2016Q2

REPORT INFORMATION
  Report Type: Spontaneous
  Country: PR (occurrence: PR)
  Receive Date: 20160505
  Receipt Date: 20160506
  Transmission Date: 20160815
  Serious: No
  Sender: FDA-Public Use
  Company Number: PR-PFIZER INC-2016221776

PATIENT
  Age: 40 Year
  Sex: Female
  Weight: 80.29 kg

DRUGS (2)
  1. NEURONTIN [Suspect]
     Active Substance: GABAPENTIN
     Indication: PAIN IN EXTREMITY
     Dosage: 800 MG, 1X/DAY
     Dates: start: 2014, end: 20160122
  2. NEURONTIN [Suspect]
     Active Substance: GABAPENTIN
     Indication: BACK PAIN
     Dosage: 300 MG, TABLET, 2X/DAY
     Route: 048
     Dates: start: 2014, end: 20160122

REACTIONS (1)
  - Drug ineffective for unapproved indication [Unknown]
